FAERS Safety Report 6594731-5 (Version None)
Quarter: 2010Q1

REPORT INFORMATION
  Report Type: 
  Country: None (occurrence: None)
  Receive Date: 20100222
  Receipt Date: 20100214
  Transmission Date: 20100710
  Serious: No
  Sender: FDA-Public Use
  Company Number: US-B.I. PHARMACEUTICALS,INC./RIDGEFIELD-2010-BP-01958BP

PATIENT
  Sex: Female

DRUGS (1)
  1. ZANTAC 150 [Suspect]

REACTIONS (1)
  - DYSGEUSIA [None]
